FAERS Safety Report 24701153 (Version 2)
Quarter: 2024Q4

REPORT INFORMATION
  Report Type: Spontaneous
  Country: FR (occurrence: FR)
  Receive Date: 20241205
  Receipt Date: 20241220
  Transmission Date: 20250115
  Serious: Yes (Other)
  Sender: SANDOZ
  Company Number: FR-PFM-2021-10238

PATIENT
  Age: 81 Year
  Sex: Male
  Weight: 77 kg

DRUGS (17)
  1. AMLODIPINE BESYLATE [Suspect]
     Active Substance: AMLODIPINE BESYLATE
     Indication: Product used for unknown indication
     Dosage: UNK
     Route: 065
     Dates: start: 2013
  2. BISOPROLOL FUMARATE [Suspect]
     Active Substance: BISOPROLOL FUMARATE
     Indication: Product used for unknown indication
     Dosage: 1 DF, QD
     Route: 065
     Dates: start: 2013
  3. BUDESONIDE\FORMOTEROL [Suspect]
     Active Substance: BUDESONIDE\FORMOTEROL
     Indication: Asthma
     Dosage: UNK
     Route: 065
     Dates: start: 2013
  4. ESOMEPRAZOLE [Suspect]
     Active Substance: ESOMEPRAZOLE
     Dosage: 1 DF, PER DAY
     Route: 065
     Dates: start: 2013
  5. ESOMEPRAZOLE [Suspect]
     Active Substance: ESOMEPRAZOLE
     Indication: Benign prostatic hyperplasia
     Dosage: 1 DF, BID (2/DAY) MORNING AND EVENING
     Route: 048
     Dates: start: 2013
  6. GLICLAZIDE [Suspect]
     Active Substance: GLICLAZIDE
     Indication: Product used for unknown indication
     Dosage: 1 DF, QD
     Route: 065
     Dates: start: 2013
  7. LOSARTAN POTASSIUM [Suspect]
     Active Substance: LOSARTAN POTASSIUM
     Indication: Hypertension
     Dosage: UNK
     Route: 065
     Dates: start: 2013
  8. HERBALS\SAW PALMETTO [Suspect]
     Active Substance: HERBALS\SAW PALMETTO
     Indication: Benign prostatic hyperplasia
     Dosage: 1 DF, QD
     Route: 048
     Dates: start: 2013
  9. HERBALS\SAW PALMETTO [Suspect]
     Active Substance: HERBALS\SAW PALMETTO
     Dosage: UNK
     Route: 048
  10. HERBALS\SAW PALMETTO [Suspect]
     Active Substance: HERBALS\SAW PALMETTO
     Dosage: UNK
     Route: 048
  11. SILODOSIN [Suspect]
     Active Substance: SILODOSIN
     Indication: Benign prostatic hyperplasia
     Dosage: 1 DF, QD
     Route: 065
     Dates: start: 2013
  12. SILODOSIN [Suspect]
     Active Substance: SILODOSIN
     Dosage: UNK
     Route: 065
     Dates: start: 2013
  13. SALICYLIC ACID [Suspect]
     Active Substance: SALICYLIC ACID
     Indication: Product used for unknown indication
     Dosage: 100 MG,QD
     Route: 065
  14. SALICYLIC ACID [Suspect]
     Active Substance: SALICYLIC ACID
     Dosage: 100 MG, DAILY
     Route: 065
     Dates: start: 2013
  15. METFORMIN\SITAGLIPTIN [Suspect]
     Active Substance: METFORMIN\SITAGLIPTIN
     Dosage: 1 DF, BID,(2/DAY) MORNING AND EVENING )
     Route: 048
  16. METFORMIN\SITAGLIPTIN [Suspect]
     Active Substance: METFORMIN\SITAGLIPTIN
     Indication: Diabetes mellitus
     Dosage: 1 DF, BID (2/DAY) MORNING AND EVENING
     Route: 048
     Dates: start: 2013
  17. METFORMIN\SITAGLIPTIN [Suspect]
     Active Substance: METFORMIN\SITAGLIPTIN
     Indication: Type 2 diabetes mellitus
     Dosage: 2 DF,QD (1 DF, BID)
     Route: 048
     Dates: start: 2013

REACTIONS (9)
  - Erectile dysfunction [Not Recovered/Not Resolved]
  - Cataract [Not Recovered/Not Resolved]
  - Rash macular [Not Recovered/Not Resolved]
  - Pruritus [Not Recovered/Not Resolved]
  - Acne [Not Recovered/Not Resolved]
  - Rash [Not Recovered/Not Resolved]
  - Pruritus [Not Recovered/Not Resolved]
  - Product use issue [Unknown]
  - Off label use [Unknown]

NARRATIVE: CASE EVENT DATE: 20200101
